FAERS Safety Report 5320170-0 (Version None)
Quarter: 2007Q2

REPORT INFORMATION
  Report Type: 
  Country: None (occurrence: None)
  Receive Date: 20070503
  Receipt Date: 20070418
  Transmission Date: 20071010
  Serious: Yes (Hospitalization)
  Sender: FDA-Public Use
  Company Number: 2007BI006291

PATIENT
  Age: 46 Year
  Sex: Male
  Weight: 62.1428 kg

DRUGS (1)
  1. NATALIZUMAB [Suspect]
     Indication: MULTIPLE SCLEROSIS
     Dosage: 300 MG; QM; IV
     Dates: start: 20070213, end: 20070301

REACTIONS (21)
  - BLOOD PHOSPHORUS ABNORMAL [None]
  - BLOOD PRESSURE DECREASED [None]
  - DEHYDRATION [None]
  - DIARRHOEA [None]
  - DROOLING [None]
  - DUODENITIS [None]
  - FAECAL INCONTINENCE [None]
  - GASTROINTESTINAL HAEMORRHAGE [None]
  - HEART RATE INCREASED [None]
  - HYPOKALAEMIA [None]
  - INFUSION RELATED REACTION [None]
  - IRON DEFICIENCY ANAEMIA [None]
  - LIVER DISORDER [None]
  - METABOLIC ACIDOSIS [None]
  - OCCULT BLOOD POSITIVE [None]
  - OESOPHAGITIS [None]
  - PUPIL FIXED [None]
  - SPIDER NAEVUS [None]
  - SYNCOPE [None]
  - THROMBOCYTOPENIA [None]
  - UPPER RESPIRATORY TRACT INFECTION [None]
